FAERS Safety Report 8236973-9 (Version None)
Quarter: 2012Q1

REPORT INFORMATION
  Report Type: 
  Country: None (occurrence: None)
  Receive Date: 20120327
  Receipt Date: 20120320
  Transmission Date: 20120608
  Serious: Yes (Hospitalization, Other)
  Sender: FDA-Public Use
  Company Number: PHEH2012US006309

PATIENT
  Sex: Male
  Weight: 104.31 kg

DRUGS (10)
  1. AMBIEN [Concomitant]
     Dosage: 10 MG, UNK
  2. TASIGNA [Suspect]
     Dosage: 2 DF, BID
     Route: 048
  3. ACYCLOVIR [Concomitant]
     Dosage: 400 MG, UNK
  4. TACROLIMUS [Concomitant]
     Dosage: 1 MG, UNK
  5. DAPSONE [Concomitant]
     Dosage: 100 MG, UNK
  6. VITAMIN D [Concomitant]
     Dosage: 400 U, UNK
  7. FLUCONAZOLE [Concomitant]
     Dosage: 100 MG, UNK
  8. METOPROLOL TARTRATE [Concomitant]
     Dosage: 25 MG, UNK
  9. GABAPENTIN [Concomitant]
     Dosage: 100 MG, UNK
  10. MYCOPHENOLATE MOFETIL [Concomitant]
     Dosage: 250 MG, UNK

REACTIONS (2)
  - GRAFT VERSUS HOST DISEASE [None]
  - ALANINE AMINOTRANSFERASE INCREASED [None]
